FAERS Safety Report 8255012-7 (Version None)
Quarter: 2012Q2

REPORT INFORMATION
  Report Type: 
  Country: None (occurrence: None)
  Receive Date: 20120403
  Receipt Date: 20120322
  Transmission Date: 20120825
  Serious: Yes (Other)
  Sender: FDA-Public Use
  Company Number: CA-JNJFOC-20120311541

PATIENT
  Sex: Female
  Weight: 50 kg

DRUGS (4)
  1. BIRTH CONTROL PILL [Concomitant]
     Indication: CONTRACEPTION
     Route: 065
  2. REMICADE [Suspect]
     Route: 042
     Dates: start: 20110617
  3. MESALAMINE [Concomitant]
     Route: 065
  4. REMICADE [Suspect]
     Indication: CROHN'S DISEASE
     Route: 042

REACTIONS (4)
  - CHEST PAIN [None]
  - HEADACHE [None]
  - DIARRHOEA [None]
  - BLOOD POTASSIUM DECREASED [None]
